FAERS Safety Report 7094464-5 (Version None)
Quarter: 2010Q4

REPORT INFORMATION
  Report Type: 
  Country: None (occurrence: None)
  Receive Date: 20101110
  Receipt Date: 20101029
  Transmission Date: 20110411
  Serious: Yes (Other)
  Sender: FDA-Public Use
  Company Number: PHHY2010ES73428

PATIENT
  Age: 49 Year
  Sex: Female

DRUGS (2)
  1. TEGRETOL [Suspect]
     Indication: MULTIPLE SCLEROSIS
     Dosage: 500 MG, QD
     Route: 048
     Dates: start: 20100904, end: 20100905
  2. ENANTYUM [Suspect]
     Dosage: UNK
     Dates: start: 20100901

REACTIONS (5)
  - ASTHENIA [None]
  - LEUKOCYTOSIS [None]
  - PYREXIA [None]
  - SOMNOLENCE [None]
  - URTICARIA [None]
